FAERS Safety Report 4760911-4 (Version None)
Quarter: 2005Q3

REPORT INFORMATION
  Report Type: 
  Country: None (occurrence: None)
  Receive Date: 20050901
  Receipt Date: 20050822
  Transmission Date: 20060218
  Serious: Yes (Other)
  Sender: FDA-Public Use
  Company Number: 2005118891

PATIENT
  Age: 58 Year
  Sex: Female
  Weight: 68.4932 kg

DRUGS (2)
  1. ZYVOX [Suspect]
     Indication: POSTOPERATIVE INFECTION
     Dosage: 1200 MG (600 MG, Q12H INTERVAL:  EVERY DAY), ORAL
     Route: 048
     Dates: start: 20050810
  2. PEPCID [Concomitant]

REACTIONS (6)
  - DRY EYE [None]
  - DRY MOUTH [None]
  - NAUSEA [None]
  - SCAB [None]
  - TRICHIASIS [None]
  - WEIGHT INCREASED [None]
